FAERS Safety Report 25467513 (Version 3)
Quarter: 2025Q3

REPORT INFORMATION
  Report Type: Spontaneous
  Country: US (occurrence: US)
  Receive Date: 20250623
  Receipt Date: 20250703
  Transmission Date: 20251021
  Serious: No
  Sender: AMGEN
  Company Number: US-AMGEN-USASP2025121063

PATIENT
  Age: 68 Year
  Sex: Male

DRUGS (7)
  1. OTEZLA [Suspect]
     Active Substance: APREMILAST
     Indication: Psoriasis
     Route: 048
  2. OTEZLA [Suspect]
     Active Substance: APREMILAST
     Dosage: 30 MILLIGRAM, QD
     Route: 048
  3. OZEMPIC [Concomitant]
     Active Substance: SEMAGLUTIDE
  4. ATENOLOL [Concomitant]
     Active Substance: ATENOLOL
  5. PRAVASTATIN [Concomitant]
     Active Substance: PRAVASTATIN
  6. PREGABALIN [Concomitant]
     Active Substance: PREGABALIN
  7. CELECOXIB [Concomitant]
     Active Substance: CELECOXIB

REACTIONS (2)
  - Influenza like illness [Recovered/Resolved]
  - Off label use [Unknown]
